FAERS Safety Report 6222557-0 (Version None)
Quarter: 2009Q2

REPORT INFORMATION
  Report Type: 
  Country: None (occurrence: None)
  Receive Date: 20090609
  Receipt Date: 20090609
  Transmission Date: 20091009
  Serious: Yes (Other)
  Sender: FDA-Public Use
  Company Number: None

PATIENT
  Age: 43 Year
  Sex: Female
  Weight: 63.5036 kg

DRUGS (1)
  1. ESTRADIOL 1 MG SANDOZ [Suspect]
     Dosage: 7 MG DAILY PO
     Route: 048
     Dates: start: 20090521, end: 20090530

REACTIONS (4)
  - JOINT SWELLING [None]
  - OEDEMA PERIPHERAL [None]
  - SWELLING [None]
  - SWELLING FACE [None]
